FAERS Safety Report 16367695 (Version 2)
Quarter: 2019Q2

REPORT INFORMATION
  Report Type: Spontaneous
  Country: US (occurrence: US)
  Receive Date: 20190529
  Receipt Date: 20190621
  Transmission Date: 20190711
  Serious: Yes (Disabling)
  Sender: FDA-Public Use
  Company Number: US-SA-2019SA140940

PATIENT
  Age: 80 Year
  Sex: Female

DRUGS (6)
  1. MAGNESIUM CHLORIDE. [Suspect]
     Active Substance: MAGNESIUM CHLORIDE
     Indication: HEART RATE IRREGULAR
     Dosage: 143 MG, BID
     Route: 048
  2. POTASSIUM [Suspect]
     Active Substance: POTASSIUM
     Indication: HEART RATE IRREGULAR
     Dosage: 99 MG, BID
     Route: 048
  3. MULTAQ [Suspect]
     Active Substance: DRONEDARONE
     Indication: ATRIAL FIBRILLATION
     Dosage: 400 MG, QD
     Route: 048
     Dates: start: 20190325, end: 20190426
  4. OLMESARTAN [Suspect]
     Active Substance: OLMESARTAN
     Indication: BLOOD PRESSURE MEASUREMENT
     Dosage: 5 MG, QD
     Route: 048
  5. ELIQUIS [Suspect]
     Active Substance: APIXABAN
     Indication: ATRIAL FIBRILLATION
     Dosage: 2.5 MG, BID
     Route: 048
     Dates: start: 201809
  6. AMINO ACID COMPLEX [Suspect]
     Active Substance: AMINO ACIDS
     Dosage: UNK UNK, BID
     Route: 048

REACTIONS (7)
  - Prosopagnosia [Recovered/Resolved]
  - Feeling abnormal [Recovered/Resolved]
  - Muscle spasms [Recovered/Resolved]
  - Transient ischaemic attack [Recovered/Resolved]
  - Drug interaction [Unknown]
  - Pain in extremity [Recovered/Resolved]
  - Myalgia [Recovered/Resolved]

NARRATIVE: CASE EVENT DATE: 20190409
